FAERS Safety Report 16055456 (Version 2)
Quarter: 2019Q1

REPORT INFORMATION
  Report Type: Report from Study
  Country: IL (occurrence: IL)
  Receive Date: 20190311
  Receipt Date: 20190312
  Transmission Date: 20190418
  Serious: Yes (Hospitalization)
  Sender: FDA-Public Use
  Company Number: IL-IPSEN BIOPHARMACEUTICALS, INC.-2019-02212

PATIENT
  Sex: Female
  Weight: 77 kg

DRUGS (8)
  1. SOMATULINE AUTOGEL 120MG [Suspect]
     Active Substance: LANREOTIDE ACETATE
     Indication: NEUROENDOCRINE TUMOUR
     Dosage: 120 MG
     Dates: start: 20090211
  2. VITAMIN D [Concomitant]
     Active Substance: CHOLECALCIFEROL
  3. ENALADEX [Concomitant]
     Active Substance: ENALAPRIL MALEATE
  4. PLAVIX [Concomitant]
     Active Substance: CLOPIDOGREL BISULFATE
  5. ELTROXIN [Concomitant]
     Active Substance: LEVOTHYROXINE
  6. OMEPRADEX [Concomitant]
     Active Substance: OMEPRAZOLE
  7. DISOTHIAZIDE [Concomitant]
     Active Substance: HYDROCHLOROTHIAZIDE
  8. RIBONE [Concomitant]
     Active Substance: RISEDRONATE SODIUM

REACTIONS (3)
  - Pneumonia [Not Recovered/Not Resolved]
  - Pain in extremity [Unknown]
  - Back pain [Unknown]
